FAERS Safety Report 17470466 (Version 2)
Quarter: 2020Q2

REPORT INFORMATION
  Report Type: Spontaneous
  Country: SK (occurrence: SK)
  Receive Date: 20200227
  Receipt Date: 20200406
  Transmission Date: 20200713
  Serious: Yes (Hospitalization)
  Sender: FDA-Public Use
  Company Number: SK-B.I. PHARMACEUTICALS,INC./RIDGEFIELD-2020-BI-010426

PATIENT
  Age: 75 Year
  Sex: Female

DRUGS (6)
  1. PRAXBIND [Suspect]
     Active Substance: IDARUCIZUMAB
     Indication: PROCOAGULANT THERAPY
     Route: 042
     Dates: start: 20190417, end: 20190417
  2. PRESTARIUM [PERINDOPRIL ARGININE] [Concomitant]
     Active Substance: PERINDOPRIL ARGININE
     Indication: PRODUCT USED FOR UNKNOWN INDICATION
     Route: 065
  3. NAFTIDROFURYL OXALATE [Concomitant]
     Active Substance: NAFRONYL OXALATE
     Indication: PRODUCT USED FOR UNKNOWN INDICATION
     Route: 065
  4. GLUCOPHAGE [Concomitant]
     Active Substance: METFORMIN HYDROCHLORIDE
     Indication: PRODUCT USED FOR UNKNOWN INDICATION
     Route: 065
  5. PANTOMYL [Concomitant]
     Active Substance: PANTOPRAZOLE SODIUM
     Indication: PRODUCT USED FOR UNKNOWN INDICATION
     Route: 065
  6. FURON [FUROSEMIDE SODIUM] [Concomitant]
     Active Substance: FUROSEMIDE SODIUM
     Indication: PRODUCT USED FOR UNKNOWN INDICATION
     Route: 065

REACTIONS (2)
  - Pulmonary oedema [Recovered/Resolved]
  - Acute myocardial infarction [Recovered/Resolved]

NARRATIVE: CASE EVENT DATE: 201904
